FAERS Safety Report 8020509-1 (Version None)
Quarter: 2012Q1

REPORT INFORMATION
  Report Type: 
  Country: None (occurrence: None)
  Receive Date: 20120103
  Receipt Date: 20111230
  Transmission Date: 20120608
  Serious: Yes (Death, Hospitalization)
  Sender: FDA-Public Use
  Company Number: US-ABBOTT-11P-163-0873841-00

PATIENT
  Sex: Female

DRUGS (4)
  1. PREDNISONE TAB [Concomitant]
     Indication: RHEUMATOID ARTHRITIS
  2. SYNTHROID [Concomitant]
     Indication: HYPOTHYROIDISM
     Dosage: 50 MCG
  3. LASIX [Concomitant]
     Indication: PRODUCT USED FOR UNKNOWN INDICATION
     Dosage: Q DAY
  4. HUMIRA [Suspect]
     Indication: RHEUMATOID ARTHRITIS
     Dates: start: 20110901, end: 20111101

REACTIONS (4)
  - DRUG DOSE OMISSION [None]
  - FALL [None]
  - ASTHENIA [None]
  - DEATH [None]
